FAERS Safety Report 8552463 (Version 5)
Quarter: 2012Q4

REPORT INFORMATION
  Report Type: 
  Country: US (occurrence: US)
  Receive Date: 20120508
  Receipt Date: 20121121
  Transmission Date: 20130627
  Serious: Yes (Death, Hospitalization, Other)
  Sender: FDA-Public Use
  Company Number: US-ACTELION-A-NJ2012-65078

PATIENT
  Age: 84 Year
  Sex: Female

DRUGS (16)
  1. TRACLEER [Suspect]
     Indication: PULMONARY ARTERIAL HYPERTENSION
     Dosage: 125 mg, bid
     Route: 048
     Dates: end: 20120912
  2. DIGOXIN [Suspect]
     Dosage: 125 mcg, UNK
  3. COUMADIN [Concomitant]
     Dosage: 4.5 mg, UNK
  4. IMODIUM [Concomitant]
     Dosage: 2 mg, 3 times a week
  5. ULTRAM [Concomitant]
     Dosage: 50 mg, q6hrs
  6. ISOPTO TEARS [Concomitant]
     Dosage: UNK, prn
  7. PEPCID [Concomitant]
     Dosage: 20 mg, UNK
  8. LASIX [Concomitant]
     Dosage: 80 mg, UNK
  9. ACETAMINOPHEN [Concomitant]
     Dosage: 1000 mg, tid
  10. CALCIUM CARBONATE [Concomitant]
     Dosage: 200 mg, UNK
  11. INSULIN ASPART [Concomitant]
  12. DELTASONE [Concomitant]
     Dosage: 10 mg, UNK
  13. CELEXA [Concomitant]
     Dosage: 10 mg, UNK
  14. RENVELA [Concomitant]
     Dosage: 800 mg, bid
  15. OXYGEN [Concomitant]
  16. EPOETIN ALFA [Concomitant]

REACTIONS (10)
  - Sepsis [Fatal]
  - Streptococcal bacteraemia [Fatal]
  - Hypertension [Fatal]
  - Lethargy [Fatal]
  - Bacteraemia [Fatal]
  - Cerebrovascular accident [Recovering/Resolving]
  - Bradycardia [Unknown]
  - Toxicity to various agents [Unknown]
  - Infection [Unknown]
  - Clostridium difficile infection [Unknown]
